APPROVED DRUG PRODUCT: ISOTRETINOIN
Active Ingredient: ISOTRETINOIN
Strength: 20MG
Dosage Form/Route: CAPSULE;ORAL
Application: A211568 | Product #002 | TE Code: AB1
Applicant: ZYDUS PHARMACEUTICALS USA INC
Approved: Aug 29, 2023 | RLD: No | RS: No | Type: RX